FAERS Safety Report 5706082-9 (Version None)
Quarter: 2008Q2

REPORT INFORMATION
  Report Type: 
  Country: None (occurrence: None)
  Receive Date: 20080415
  Receipt Date: 20080408
  Transmission Date: 20081010
  Serious: Yes (Death, Hospitalization)
  Sender: FDA-Public Use
  Company Number: SI-ROCHE-555185

PATIENT
  Sex: Male

DRUGS (7)
  1. MIRCERA [Suspect]
     Route: 065
     Dates: start: 20080122, end: 20080223
  2. RENAGEL [Concomitant]
  3. CALCIUM CARBONATE [Concomitant]
  4. CONTROLOC [Concomitant]
  5. MICARDIS [Concomitant]
  6. AMPRIL [Concomitant]
  7. REQUIP [Concomitant]

REACTIONS (2)
  - CARDIAC FAILURE [None]
  - HIP FRACTURE [None]
